FAERS Safety Report 8010605-7 (Version None)
Quarter: 2011Q4

REPORT INFORMATION
  Report Type: 
  Country: None (occurrence: None)
  Receive Date: 20111228
  Receipt Date: 20111221
  Transmission Date: 20120403
  Serious: Yes (Other)
  Sender: FDA-Public Use
  Company Number: PHHY2011DE111852

PATIENT
  Age: 57 Year
  Sex: Female

DRUGS (3)
  1. ZOLEDRONOC ACID [Suspect]
     Dosage: 5 MG
     Route: 042
     Dates: start: 20110601
  2. ZOLEDRONOC ACID [Suspect]
     Indication: OSTEOPOROSIS
     Dosage: 5 MG
     Route: 042
     Dates: start: 20101201
  3. ZOLEDRONOC ACID [Suspect]
     Dosage: 5 MG
     Route: 042
     Dates: start: 20111220

REACTIONS (3)
  - PSEUDARTHROSIS [None]
  - IMPAIRED HEALING [None]
  - INCORRECT DOSE ADMINISTERED [None]
